FAERS Safety Report 14299014 (Version 1)
Quarter: 2017Q4

REPORT INFORMATION
  Report Type: Spontaneous
  Country: US (occurrence: US)
  Receive Date: 20171217
  Receipt Date: 20171217
  Transmission Date: 20180321
  Serious: No
  Sender: FDA-Public Use
  Company Number: None

PATIENT
  Age: 74 Year
  Sex: Male

DRUGS (1)
  1. LOSARTAN. [Suspect]
     Active Substance: LOSARTAN
     Indication: HYPERTENSION
     Dates: start: 20171206, end: 20171217

REACTIONS (3)
  - Blood pressure increased [None]
  - Impaired healing [None]
  - Haemorrhage [None]

NARRATIVE: CASE EVENT DATE: 20171206
